FAERS Safety Report 10944920 (Version 7)
Quarter: 2017Q4

REPORT INFORMATION
  Report Type: Spontaneous
  Country: CA (occurrence: CA)
  Receive Date: 20150323
  Receipt Date: 20171211
  Transmission Date: 20180320
  Serious: Yes (Hospitalization, Other)
  Sender: FDA-Public Use
  Company Number: CA-OTSUKA-US-2015-11250

PATIENT

DRUGS (7)
  1. ARIPIPRAZOLE. [Suspect]
     Active Substance: ARIPIPRAZOLE
     Dosage: 70 MG, QD
     Route: 048
  2. ARIPIPRAZOLE. [Suspect]
     Active Substance: ARIPIPRAZOLE
     Dosage: 45 MG, UNK
     Route: 048
     Dates: start: 20150123
  3. ARIPIPRAZOLE. [Suspect]
     Active Substance: ARIPIPRAZOLE
     Dosage: 15 MG, UNK
     Route: 048
     Dates: start: 20150310, end: 20150317
  4. ARIPIPRAZOLE. [Suspect]
     Active Substance: ARIPIPRAZOLE
     Indication: SCHIZOPHRENIA
     Dosage: UNK
     Route: 048
     Dates: start: 201501, end: 20150317
  5. ABILIFY MAINTENA [Suspect]
     Active Substance: ARIPIPRAZOLE
     Dosage: 400 MG MILLIGRAM(S), TWICE MONTHLY
     Route: 030
     Dates: start: 201502, end: 20150317
  6. ABILIFY MAINTENA [Suspect]
     Active Substance: ARIPIPRAZOLE
     Indication: SCHIZOPHRENIA
     Dosage: UNK
     Route: 030
     Dates: start: 20150111
  7. ARIPIPRAZOLE. [Suspect]
     Active Substance: ARIPIPRAZOLE
     Dosage: 30 MG, UNK
     Route: 048
     Dates: start: 20150226

REACTIONS (14)
  - Hostility [Not Recovered/Not Resolved]
  - Prescribed overdose [Not Recovered/Not Resolved]
  - Inappropriate schedule of drug administration [Not Recovered/Not Resolved]
  - Speech disorder [Unknown]
  - Delusion [Not Recovered/Not Resolved]
  - Insomnia [Unknown]
  - Schizophrenia [Not Recovered/Not Resolved]
  - Aggression [Not Recovered/Not Resolved]
  - Memory impairment [Not Recovered/Not Resolved]
  - Aggression [Unknown]
  - Swollen tongue [Unknown]
  - Hallucination [Not Recovered/Not Resolved]
  - Soliloquy [Not Recovered/Not Resolved]
  - Drug ineffective [Not Recovered/Not Resolved]
